FAERS Safety Report 25714287 (Version 2)
Quarter: 2025Q3

REPORT INFORMATION
  Report Type: Report from Study
  Country: US (occurrence: US)
  Receive Date: 20250822
  Receipt Date: 20250919
  Transmission Date: 20251021
  Serious: Yes (Hospitalization, Other)
  Sender: ABBVIE
  Company Number: US-ABBVIE-6424017

PATIENT
  Sex: Female

DRUGS (1)
  1. SKYRIZI [Suspect]
     Active Substance: RISANKIZUMAB-RZAA
     Indication: Crohn^s disease
     Route: 058
     Dates: start: 20240910

REACTIONS (13)
  - Nephrolithiasis [Recovering/Resolving]
  - Obstruction [Unknown]
  - Sepsis [Unknown]
  - Vomiting [Unknown]
  - Pain [Unknown]
  - Fall [Recovering/Resolving]
  - Renal colic [Unknown]
  - Head injury [Unknown]
  - Eye contusion [Unknown]
  - Contusion [Unknown]
  - Haemoglobin decreased [Unknown]
  - Confusional state [Unknown]
  - Renal haematoma [Unknown]
